FAERS Safety Report 7054123-1 (Version None)
Quarter: 2010Q4

REPORT INFORMATION
  Report Type: 
  Country: None (occurrence: None)
  Receive Date: 20101020
  Receipt Date: 20101008
  Transmission Date: 20110411
  Serious: Yes (Other)
  Sender: FDA-Public Use
  Company Number: PHHY2010US67809

PATIENT
  Age: 60 Year
  Sex: Female

DRUGS (3)
  1. ZOMETA [Suspect]
     Indication: METASTASES TO BONE
     Dosage: 4 MG EVERY 3 WEEKS
     Route: 042
     Dates: start: 20070101
  2. REVLIMID [Concomitant]
  3. DEXAMETHASONE [Concomitant]

REACTIONS (1)
  - JAW DISORDER [None]
